FAERS Safety Report 4373146-4 (Version None)
Quarter: 2004Q2

REPORT INFORMATION
  Report Type: 
  Country: None (occurrence: None)
  Receive Date: 20040603
  Receipt Date: 20040518
  Transmission Date: 20050107
  Serious: Yes (Hospitalization, Other)
  Sender: FDA-Public Use
  Company Number: USA040464678

PATIENT
  Age: 13 Year
  Sex: Male
  Weight: 59 kg

DRUGS (1)
  1. STRATTERA [Suspect]
     Indication: ATTENTION DEFICIT/HYPERACTIVITY DISORDER
     Dosage: 40 MG/2 DAY
     Dates: start: 20040201, end: 20040330

REACTIONS (8)
  - ANOREXIA [None]
  - CARNITINE INCREASED [None]
  - CHROMOSOME ABNORMALITY [None]
  - CONGESTIVE CARDIOMYOPATHY [None]
  - EJECTION FRACTION DECREASED [None]
  - HEPATITIS C POSITIVE [None]
  - HIV TEST POSITIVE [None]
  - URINE ANALYSIS ABNORMAL [None]
